FAERS Safety Report 12746661 (Version 2)
Quarter: 2016Q4

REPORT INFORMATION
  Report Type: Report from Study
  Country: JP (occurrence: JP)
  Receive Date: 20160915
  Receipt Date: 20161005
  Transmission Date: 20170207
  Serious: Yes (Hospitalization, Other)
  Sender: FDA-Public Use
  Company Number: JP-DSJP-DSJ-2016-129675

PATIENT

DRUGS (35)
  1. OLMETEC [Concomitant]
     Active Substance: OLMESARTAN MEDOXOMIL
     Dosage: 20MG/DAY
     Route: 048
     Dates: end: 20160704
  2. FLUITRAN [Concomitant]
     Active Substance: TRICHLORMETHIAZIDE
     Dosage: 0.5MG/DAY
     Route: 048
  3. CALONAL [Concomitant]
     Active Substance: ACETAMINOPHEN
     Dosage: 500MG/DAY
     Route: 048
     Dates: start: 20160207
  4. RITUXAN [Concomitant]
     Active Substance: RITUXIMAB
     Dosage: 660MG/DAY
     Route: 042
     Dates: start: 20160307, end: 20160307
  5. THERARUBICIN                       /00963102/ [Concomitant]
     Dosage: 30MG/DAY
     Route: 042
     Dates: start: 20160426, end: 20160426
  6. ENDOXAN                            /00021101/ [Concomitant]
     Active Substance: CYCLOPHOSPHAMIDE
     Dosage: 500MG/DAY
     Route: 042
     Dates: start: 20160426, end: 20160426
  7. EDOXABAN [Suspect]
     Active Substance: EDOXABAN TOSYLATE
     Indication: ATRIAL FIBRILLATION
     Dosage: 30 MG, QD
     Route: 048
     Dates: start: 20150825, end: 20160128
  8. CONIEL [Concomitant]
     Active Substance: BENIDIPINE HYDROCHLORIDE
     Dosage: 8MG/DAY
     Route: 048
     Dates: end: 20160704
  9. SULFAMETHOXAZOLE AND TRIMETHOPRIM [Concomitant]
     Active Substance: SULFAMETHOXAZOLE\TRIMETHOPRIM
     Dosage: 1 DF, 3 TIMES PER 1WK
     Route: 048
     Dates: start: 20160208, end: 20160226
  10. RITUXAN [Concomitant]
     Active Substance: RITUXIMAB
     Dosage: 675MG/DAY
     Route: 042
     Dates: start: 20160215, end: 20160215
  11. PREDONINE [Concomitant]
     Active Substance: PREDNISOLONE\PREDNISOLONE ACETATE\PREDNISOLONE SODIUM SUCCINATE
     Dosage: 30MG/DAY
     Route: 048
     Dates: start: 20160404, end: 20160408
  12. EDOXABAN [Suspect]
     Active Substance: EDOXABAN TOSYLATE
     Dosage: 30 MG, QD
     Route: 048
     Dates: start: 20160315
  13. THEO-DUR [Concomitant]
     Active Substance: THEOPHYLLINE ANHYDROUS
     Dosage: 200G/DAY
     Route: 048
  14. RITUXAN [Concomitant]
     Active Substance: RITUXIMAB
     Dosage: 650MG/DAY
     Route: 042
     Dates: start: 20160323, end: 20160323
  15. THERARUBICIN                       /00963102/ [Concomitant]
     Dosage: 30G/DAY
     Route: 042
     Dates: start: 20160405, end: 20160405
  16. ENDOXAN                            /00021101/ [Concomitant]
     Active Substance: CYCLOPHOSPHAMIDE
     Dosage: 500MG/DAY
     Route: 042
     Dates: start: 20160405, end: 20160405
  17. ZYLORIC [Concomitant]
     Active Substance: ALLOPURINOL
     Dosage: 100MG/DAY
     Route: 048
  18. REBAMIPIDE [Concomitant]
     Active Substance: REBAMIPIDE
     Dosage: 300MG/DAY
     Route: 048
     Dates: start: 20160130
  19. RITUXAN [Concomitant]
     Active Substance: RITUXIMAB
     Dosage: 633MG/DAY
     Route: 042
     Dates: start: 20160425, end: 20160425
  20. ONCOVIN [Concomitant]
     Active Substance: VINCRISTINE SULFATE
     Dosage: 1MG/DAY
     Route: 042
     Dates: start: 20160426, end: 20160426
  21. FLUCONAZOLE. [Concomitant]
     Active Substance: FLUCONAZOLE
     Dosage: 100MG/DAY
     Route: 048
     Dates: start: 20160205
  22. RITUXAN [Concomitant]
     Active Substance: RITUXIMAB
     Dosage: 660MG/DAY
     Route: 042
     Dates: start: 20160229, end: 20160229
  23. ONCOVIN [Concomitant]
     Active Substance: VINCRISTINE SULFATE
     Dosage: 1MG/DAY
     Route: 042
     Dates: start: 20160405, end: 20160405
  24. NEXIUM [Concomitant]
     Active Substance: ESOMEPRAZOLE MAGNESIUM
     Dosage: 20MG/DAY
     Route: 048
     Dates: start: 20150818
  25. SIMVASTATIN. [Concomitant]
     Active Substance: SIMVASTATIN
     Dosage: 10MG/DAY
     Route: 048
  26. HICEE                              /00008001/ [Concomitant]
     Dosage: 2 DF/DAY
     Route: 048
     Dates: start: 20150821, end: 20160128
  27. RITUXAN [Concomitant]
     Active Substance: RITUXIMAB
     Dosage: 675MG/DAY
     Route: 042
     Dates: start: 20160208, end: 20160208
  28. WARFARIN                           /00014803/ [Concomitant]
     Active Substance: WARFARIN
     Dosage: 4.25MG/DAY
     Route: 048
     Dates: end: 20150817
  29. RITUXAN [Concomitant]
     Active Substance: RITUXIMAB
     Dosage: 660MG/DAY
     Route: 042
     Dates: start: 20160222, end: 20160222
  30. NEUTROGIN [Concomitant]
     Active Substance: LENOGRASTIM
     Dosage: 100UG/DAY
     Route: 042
     Dates: start: 20160421
  31. VERAPAMIL HYDROCHLORIDE. [Concomitant]
     Active Substance: VERAPAMIL HYDROCHLORIDE
     Indication: ATRIAL FIBRILLATION
     Dosage: 80MG/DAY
     Route: 048
  32. MAGLAX [Concomitant]
     Active Substance: MAGNESIUM OXIDE
     Dosage: 4 DF/DAY
     Route: 048
  33. FENELMIN [Concomitant]
     Dosage: 100MG/DAY
     Route: 048
     Dates: start: 20150821, end: 20160128
  34. RITUXAN [Concomitant]
     Active Substance: RITUXIMAB
     Dosage: 645MG/DAY
     Route: 048
     Dates: start: 20160404, end: 20160404
  35. PREDONINE [Concomitant]
     Active Substance: PREDNISOLONE\PREDNISOLONE ACETATE\PREDNISOLONE SODIUM SUCCINATE
     Dosage: 30MG/DAY
     Route: 048
     Dates: start: 20160425, end: 20160429

REACTIONS (3)
  - Peripheral embolism [Recovering/Resolving]
  - Faeces discoloured [Recovering/Resolving]
  - Lymphoma [Recovering/Resolving]

NARRATIVE: CASE EVENT DATE: 201601
